FAERS Safety Report 25883868 (Version 1)
Quarter: 2025Q4

REPORT INFORMATION
  Report Type: Spontaneous
  Country: US (occurrence: None)
  Receive Date: 20251003
  Receipt Date: 20251003
  Transmission Date: 20260118
  Serious: Yes (Hospitalization)
  Sender: FDA-CTU
  Company Number: None

PATIENT
  Age: 44 Year
  Sex: Male
  Weight: 92.25 kg

DRUGS (1)
  1. 7-HYDROXYMITRAGYNINE [Suspect]
     Active Substance: 7-HYDROXYMITRAGYNINE
     Indication: Pain management
     Dates: start: 20250929, end: 20250929

REACTIONS (3)
  - Seizure [None]
  - Cyanosis [None]
  - Foaming at mouth [None]

NARRATIVE: CASE EVENT DATE: 20250929
